FAERS Safety Report 14595954 (Version 1)
Quarter: 2018Q1

REPORT INFORMATION
  Report Type: Spontaneous
  Country: None (occurrence: PT)
  Receive Date: 20180303
  Receipt Date: 20180303
  Transmission Date: 20180509
  Serious: Yes (Other)
  Sender: FDA-Public Use
  Company Number: PT-AUROBINDO-AUR-APL-2018-010604

PATIENT
  Age: 47 Year
  Sex: Female

DRUGS (3)
  1. EMTRICITABINE [Suspect]
     Active Substance: EMTRICITABINE
     Indication: ANTIRETROVIRAL THERAPY
     Route: 065
  2. TENOFOVIR [Suspect]
     Active Substance: TENOFOVIR
     Indication: ANTIRETROVIRAL THERAPY
     Route: 065
  3. NEVIRAPINE. [Suspect]
     Active Substance: NEVIRAPINE
     Indication: ANTIRETROVIRAL THERAPY
     Route: 065

REACTIONS (1)
  - Hypersensitivity [Unknown]
